FAERS Safety Report 6269910-7 (Version None)
Quarter: 2009Q3

REPORT INFORMATION
  Report Type: 
  Country: None (occurrence: None)
  Receive Date: 20090716
  Receipt Date: 20090702
  Transmission Date: 20100115
  Serious: Yes (Other)
  Sender: FDA-Public Use
  Company Number: PHHY2009JP21022

PATIENT
  Sex: Female

DRUGS (7)
  1. SANDOSTATIN LAR [Suspect]
     Indication: VIPOMA
     Dosage: 40 MG, QMO
     Route: 030
     Dates: start: 20090122
  2. SANDOSTATIN LAR [Suspect]
     Dosage: 30 MG, QMO
     Route: 030
     Dates: start: 20090611
  3. SANDOSTATIN [Suspect]
     Indication: VIPOMA
     Dosage: 150 UG DAILY
     Route: 058
     Dates: start: 20090514
  4. SANDOSTATIN [Suspect]
     Dosage: 300 UG DAILY
     Route: 058
  5. LOPEMIN [Concomitant]
     Indication: DIARRHOEA
     Route: 048
  6. ADSORBIN [Concomitant]
     Indication: DIARRHOEA
     Route: 048
  7. ASPARA K [Concomitant]
     Indication: HYPOKALAEMIA
     Route: 048

REACTIONS (9)
  - ABDOMINAL PAIN [None]
  - DECREASED APPETITE [None]
  - DIARRHOEA [None]
  - DRUG INEFFECTIVE [None]
  - ERYTHEMA [None]
  - FEELING HOT [None]
  - HYPOAESTHESIA [None]
  - HYPOKALAEMIA [None]
  - MALAISE [None]
